FAERS Safety Report 21070724 (Version 3)
Quarter: 2023Q1

REPORT INFORMATION
  Report Type: Spontaneous
  Country: JP (occurrence: None)
  Receive Date: 20220712
  Receipt Date: 20230203
  Transmission Date: 20230418
  Serious: Yes (Death, Life-Threatening, Other)
  Sender: FDA-Public Use
  Company Number: 2022A249124

PATIENT
  Age: 89 Year
  Sex: Female

DRUGS (12)
  1. LOKELMA [Suspect]
     Active Substance: SODIUM ZIRCONIUM CYCLOSILICATE
     Indication: Hyperkalaemia
     Route: 048
     Dates: start: 20220608, end: 20220609
  2. LOKELMA [Suspect]
     Active Substance: SODIUM ZIRCONIUM CYCLOSILICATE
     Indication: Hyperkalaemia
     Route: 048
     Dates: start: 20220610, end: 20220621
  3. LOKELMA [Suspect]
     Active Substance: SODIUM ZIRCONIUM CYCLOSILICATE
     Indication: Hyperkalaemia
     Route: 048
     Dates: start: 20220706, end: 20220723
  4. AMLODIPINE [Concomitant]
     Active Substance: AMLODIPINE BESYLATE
     Indication: Hypertension
     Route: 048
     Dates: end: 20220720
  5. LEVOTHYROXINE [Concomitant]
     Active Substance: LEVOTHYROXINE
     Indication: Hypothyroidism
     Route: 048
     Dates: start: 20210625, end: 20220720
  6. LINAGLIPTIN [Concomitant]
     Active Substance: LINAGLIPTIN
     Indication: Cardiac failure congestive
     Route: 048
     Dates: start: 20210625, end: 20220720
  7. EDOXABAN TOSYLATE [Concomitant]
     Active Substance: EDOXABAN TOSYLATE
     Indication: Atrial fibrillation
     Route: 048
     Dates: start: 20210812, end: 20220720
  8. BISOPROLOL [Concomitant]
     Active Substance: BISOPROLOL
     Indication: Cardiac failure congestive
     Route: 048
     Dates: start: 20220608, end: 20220720
  9. URSODIOL [Concomitant]
     Active Substance: URSODIOL
     Indication: Hepatic function abnormal
     Dosage: DOSE UNKNOWN
     Route: 048
     Dates: start: 20211026, end: 20220720
  10. URSODIOL [Concomitant]
     Active Substance: URSODIOL
     Indication: Cholecystitis
     Dosage: DOSE UNKNOWN
     Route: 048
     Dates: start: 20211026, end: 20220720
  11. MAGNESIUM OXIDE [Concomitant]
     Active Substance: MAGNESIUM OXIDE
     Indication: Constipation
     Route: 048
     Dates: start: 20210620
  12. ENORAS [Concomitant]
     Indication: Hypolipidaemia
     Route: 048
     Dates: start: 20220121

REACTIONS (12)
  - Cardiac failure congestive [Recovering/Resolving]
  - Hypoxia [Unknown]
  - Anal erosion [Recovering/Resolving]
  - Pneumonia aspiration [Recovering/Resolving]
  - Pneumonia legionella [Fatal]
  - Shock haemorrhagic [Unknown]
  - Ulcer [Unknown]
  - Aortic valve incompetence [Unknown]
  - Atrial fibrillation [Unknown]
  - Hyperkalaemia [Unknown]
  - Tricuspid valve incompetence [Unknown]
  - Oedema [Recovering/Resolving]

NARRATIVE: CASE EVENT DATE: 20220101
